FAERS Safety Report 19925065 (Version 3)
Quarter: 2022Q2

REPORT INFORMATION
  Report Type: Spontaneous
  Country: ES (occurrence: ES)
  Receive Date: 20211006
  Receipt Date: 20220613
  Transmission Date: 20220721
  Serious: Yes (Other)
  Sender: FDA-Public Use
  Company Number: ES-ROCHE-2911858

PATIENT
  Age: 18 Year
  Sex: Male

DRUGS (2)
  1. BEVACIZUMAB [Suspect]
     Active Substance: BEVACIZUMAB
     Indication: Hereditary leiomyomatosis renal cell carcinoma
     Dosage: 10 MG/M2, BIWEEKLY
     Route: 065
  2. ERLOTINIB [Suspect]
     Active Substance: ERLOTINIB
     Indication: Hereditary leiomyomatosis renal cell carcinoma
     Dosage: 150 MG, QD
     Route: 048

REACTIONS (3)
  - Dermatitis acneiform [Unknown]
  - Hypothyroidism [Unknown]
  - Neoplasm progression [Recovering/Resolving]
